FAERS Safety Report 6466774-3 (Version None)
Quarter: 2009Q4

REPORT INFORMATION
  Report Type: 
  Country: None (occurrence: None)
  Receive Date: 20091202
  Receipt Date: 20070222
  Transmission Date: 20100525
  Serious: Yes (Disabling)
  Sender: FDA-Public Use
  Company Number: JP-JNJCH-2007017347

PATIENT
  Sex: Female

DRUGS (7)
  1. CETIRIZINE HYDROCHLORIDE [Suspect]
     Indication: ECZEMA
     Dosage: DAILY DOSE:10MG-TEXT:10 MG
     Route: 048
     Dates: start: 20060425, end: 20070101
  2. PRAVASTATIN SODIUM [Concomitant]
     Indication: HYPERLIPIDAEMIA
     Dosage: TEXT:2 DF
     Route: 048
  3. ALFACALCIDOL [Concomitant]
     Indication: OSTEOPOROSIS
     Dosage: TEXT:1 DF
     Route: 048
     Dates: start: 19990927
  4. CALCIUM LACTATE [Concomitant]
     Route: 048
  5. DIPYRIDAMOLE [Concomitant]
     Indication: CARDIAC FAILURE
     Dosage: TEXT:3 DF
     Route: 048
  6. RANITIDINE HYDROCHLORIDE [Concomitant]
  7. BETAMETHASONE BUTYRATE PROPIONATE [Concomitant]
     Indication: ECZEMA
     Route: 061

REACTIONS (4)
  - ARRHYTHMIA [None]
  - BRADYCARDIA [None]
  - DECREASED APPETITE [None]
  - DIZZINESS [None]
